FAERS Safety Report 5040749-3 (Version None)
Quarter: 2006Q3

REPORT INFORMATION
  Report Type: 
  Country: None (occurrence: None)
  Receive Date: 20060703
  Receipt Date: 20060612
  Transmission Date: 20061208
  Serious: Yes (Death, Hospitalization, Other)
  Sender: FDA-Public Use
  Company Number: PHHO2006JP09485

PATIENT
  Age: 58 Year
  Sex: Male
  Weight: 46 kg

DRUGS (1)
  1. GLEEVEC [Suspect]
     Indication: GASTROINTESTINAL STROMAL TUMOUR
     Dosage: 400 MG, QD
     Route: 048
     Dates: start: 20031120, end: 20060320

REACTIONS (6)
  - ANOREXIA [None]
  - DECREASED APPETITE [None]
  - OEDEMA PERIPHERAL [None]
  - PANCYTOPENIA [None]
  - PYREXIA [None]
  - RESPIRATORY ARREST [None]
